FAERS Safety Report 19976925 (Version 1)
Quarter: 2021Q4

REPORT INFORMATION
  Report Type: Spontaneous
  Country: US (occurrence: US)
  Receive Date: 20211020
  Receipt Date: 20211020
  Transmission Date: 20220303
  Serious: No
  Sender: FDA-Public Use
  Company Number: US-ALLERGAN-2127279US

PATIENT
  Sex: Male

DRUGS (6)
  1. LINZESS [Suspect]
     Active Substance: LINACLOTIDE
     Indication: Irritable bowel syndrome
     Dosage: 72 ?G, QD
     Dates: start: 20210421
  2. ASPIRIN [Concomitant]
     Active Substance: ASPIRIN
  3. DULOXETINE [Concomitant]
     Active Substance: DULOXETINE
  4. ELIQUIS [Concomitant]
     Active Substance: APIXABAN
  5. KEPPRA [Concomitant]
     Active Substance: LEVETIRACETAM
  6. DOXAZOSIN [Concomitant]
     Active Substance: DOXAZOSIN MESYLATE

REACTIONS (1)
  - Off label use [Unknown]
